FAERS Safety Report 12125001 (Version 1)
Quarter: 2016Q1

REPORT INFORMATION
  Report Type: Report from Study
  Country: CN (occurrence: CN)
  Receive Date: 20160229
  Receipt Date: 20160229
  Transmission Date: 20160526
  Serious: Yes (Other)
  Sender: FDA-Public Use
  Company Number: CN-BAUSCH-BL-2016-004396

PATIENT
  Age: 106 Month
  Sex: Female

DRUGS (5)
  1. DEXAMETHASONE. [Suspect]
     Active Substance: DEXAMETHASONE
     Indication: ACUTE ENCEPHALITIS WITH REFRACTORY, REPETITIVE PARTIAL SEIZURES
     Dosage: 0.15 MG/KG/DAY DIVIDED INTO TWO ORAL DOSES FOR THE FIRST 4 WEEKS
     Route: 048
  2. CARBAMAZEPINE. [Concomitant]
     Active Substance: CARBAMAZEPINE
     Indication: SEIZURE
  3. VALPROIC ACID. [Concomitant]
     Active Substance: VALPROIC ACID
     Indication: SEIZURE
  4. PREDNISONE. [Concomitant]
     Active Substance: PREDNISONE
     Indication: SEIZURE
     Dosage: 0.15-MG DEX IS EQUIVALENT TO 1-MG PREDNISONE
  5. LEVETIRACETAM. [Concomitant]
     Active Substance: LEVETIRACETAM
     Indication: SEIZURE

REACTIONS (3)
  - Increased appetite [Recovered/Resolved]
  - Partial seizures with secondary generalisation [Recovered/Resolved]
  - Weight increased [Recovered/Resolved]
